FAERS Safety Report 18415295 (Version 1)
Quarter: 2020Q4

REPORT INFORMATION
  Report Type: Spontaneous
  Country: US (occurrence: US)
  Receive Date: 20201022
  Receipt Date: 20201022
  Transmission Date: 20210114
  Serious: Yes (Hospitalization, Other)
  Sender: FDA-Public Use
  Company Number: None

PATIENT
  Age: 85 Year
  Sex: Male
  Weight: 59.87 kg

DRUGS (2)
  1. WARFARIN (WARFARIN NA 1MG TAB) [Suspect]
     Active Substance: WARFARIN SODIUM
     Indication: CARDIAC VALVE PROSTHESIS USER
     Route: 048
     Dates: start: 20080528
  2. WARFARIN (WARFARIN NA 1MG TAB) [Suspect]
     Active Substance: WARFARIN SODIUM
     Route: 048

REACTIONS (5)
  - Fall [None]
  - Subdural haematoma [None]
  - Haemorrhage [None]
  - Subarachnoid haemorrhage [None]
  - Haemorrhage intracranial [None]

NARRATIVE: CASE EVENT DATE: 20200430
